FAERS Safety Report 10595892 (Version 1)
Quarter: 2014Q4

REPORT INFORMATION
  Report Type: Spontaneous
  Country: CH (occurrence: CH)
  Receive Date: 20141120
  Receipt Date: 20141120
  Transmission Date: 20150529
  Serious: Yes (Hospitalization)
  Sender: FDA-Public Use
  Company Number: CH-PFIZER INC-2014313822

PATIENT
  Age: 54 Year
  Sex: Male

DRUGS (4)
  1. DICLOFENAC [Suspect]
     Active Substance: DICLOFENAC
     Dosage: UNK
     Dates: start: 20140729, end: 20140806
  2. TAZOBAC [Suspect]
     Active Substance: PIPERACILLIN SODIUM\TAZOBACTAM SODIUM
     Dosage: 4.5 G, 3X/DAY
     Route: 042
     Dates: start: 20140729, end: 20140806
  3. COLISTIN/HYDROCORTISONE ACETATE/NEOMYCIN SULFATE [Suspect]
     Active Substance: COLISTIN SULFATE\HYDROCORTISONE ACETATE\NEOMYCIN SULFATE
     Indication: PNEUMONIA BACTERIAL
     Dosage: 3 MILLION IU, 3X/DAY
     Route: 042
     Dates: start: 20140812, end: 20140826
  4. TAZOBAC [Suspect]
     Active Substance: PIPERACILLIN SODIUM\TAZOBACTAM SODIUM
     Indication: PNEUMONIA BACTERIAL
     Dosage: 4.5 G, 3X/DAY
     Route: 042
     Dates: start: 20140813, end: 20140816

REACTIONS (2)
  - Acute kidney injury [Recovering/Resolving]
  - Staphylococcus test positive [None]

NARRATIVE: CASE EVENT DATE: 20140825
